FAERS Safety Report 7575279-8 (Version None)
Quarter: 2011Q2

REPORT INFORMATION
  Report Type: 
  Country: None (occurrence: None)
  Receive Date: 20110627
  Receipt Date: 20110620
  Transmission Date: 20111010
  Serious: Yes (Other)
  Sender: FDA-Public Use
  Company Number: US-PFIZER INC-2011098139

PATIENT
  Sex: Female
  Weight: 66 kg

DRUGS (4)
  1. PREMPRO [Suspect]
     Indication: HORMONE REPLACEMENT THERAPY
     Dosage: 0.45 MG, 1X/DAY
     Route: 048
  2. OMEGA-3 TRIGLYCERIDES [Concomitant]
     Dosage: UNK
  3. THIAMINE [Concomitant]
     Indication: VITAMIN SUPPLEMENTATION
     Dosage: 100 MG, UNK
  4. MONTELUKAST SODIUM [Concomitant]
     Indication: RHINITIS ALLERGIC
     Dosage: 15 MG, 1X/DAY
     Route: 048

REACTIONS (1)
  - OBESITY SURGERY [None]
